FAERS Safety Report 8538336-5 (Version None)
Quarter: 2012Q3

REPORT INFORMATION
  Report Type: 
  Country: None (occurrence: None)
  Receive Date: 20120726
  Receipt Date: 20120717
  Transmission Date: 20120928
  Serious: Yes (Life-Threatening, Hospitalization)
  Sender: FDA-Public Use
  Company Number: JP-009507513-2010SP043549

PATIENT

DRUGS (6)
  1. THERAPEUTIC RADIOPHARMACEUTICAL (UNSPECIFIED) [Concomitant]
  2. LOXOPROFEN [Concomitant]
     Indication: HEADACHE
     Dosage: 60 MG, BID
     Route: 048
     Dates: start: 20100301, end: 20100616
  3. TEMODAL [Suspect]
     Indication: ANAPLASTIC ASTROCYTOMA
     Dosage: 75 MG/M2, QD
     Route: 048
     Dates: start: 20100324, end: 20100504
  4. ZONISAMIDE [Concomitant]
     Indication: CONVULSION PROPHYLAXIS
     Dosage: 100 MG, BID
     Route: 048
     Dates: start: 20100301
  5. MUCOSTA [Concomitant]
     Indication: PROPHYLAXIS
     Dosage: 100 MG, BID
     Route: 048
     Dates: start: 20100301, end: 20100616
  6. SULFAMETHOXAZOLE AND TRIMETHOPRIM [Concomitant]
     Indication: ANTIFUNGAL PROPHYLAXIS
     Dosage: 2 G, BIW
     Route: 048
     Dates: start: 20100327, end: 20100616

REACTIONS (1)
  - HEPATITIS B [None]
